FAERS Safety Report 17925335 (Version 2)
Quarter: 2020Q3

REPORT INFORMATION
  Report Type: Spontaneous
  Country: CN (occurrence: CN)
  Receive Date: 20200622
  Receipt Date: 20200623
  Transmission Date: 20201105
  Serious: Yes (Hospitalization)
  Sender: FDA-Public Use
  Company Number: CN-CELGENEUS-CHN-20200604414

PATIENT
  Age: 74 Year
  Sex: Male
  Weight: 66 kg

DRUGS (16)
  1. CARBOPLATIN. [Suspect]
     Active Substance: CARBOPLATIN
     Indication: SQUAMOUS CELL CARCINOMA OF LUNG
     Dosage: 23.3333 MILLIGRAM
     Route: 041
     Dates: start: 20200507, end: 20200508
  2. CARBOPLATIN. [Suspect]
     Active Substance: CARBOPLATIN
     Dosage: 26.1905 MILLIGRAM
     Route: 041
     Dates: start: 20200529
  3. YUNNAN BAIYAO [Concomitant]
     Indication: HAEMOPTYSIS
     Dosage: .25 GRAM
     Route: 048
     Dates: start: 20200523, end: 20200524
  4. ABRAXANE [Suspect]
     Active Substance: PACLITAXEL
     Indication: SQUAMOUS CELL CARCINOMA OF LUNG
     Dosage: 25 MILLIGRAM
     Route: 041
     Dates: start: 20200507, end: 20200521
  5. GLUCOPHAGE [Concomitant]
     Active Substance: METFORMIN HYDROCHLORIDE
     Indication: DIABETES MELLITUS
     Dosage: 36000 MILLIGRAM
     Route: 048
     Dates: start: 2019
  6. GRANISETRON HYDROCHLORIDE. [Concomitant]
     Active Substance: GRANISETRON HYDROCHLORIDE
     Indication: ANTIEMETIC SUPPORTIVE CARE
     Route: 041
     Dates: start: 20200529, end: 20200529
  7. SERPLULIMAB. [Suspect]
     Active Substance: SERPLULIMAB
     Dosage: 13.8095 MILLIGRAM
     Route: 041
     Dates: start: 20200529
  8. GLYCYRRHIZIN [Concomitant]
     Active Substance: GLYCYRRHIZIN
     Indication: PROPHYLAXIS
     Route: 041
     Dates: start: 20200529, end: 20200529
  9. SODIUM GLUCURONATE [Concomitant]
     Active Substance: SODIUM GLUCURONATE
     Indication: PROPHYLAXIS
     Route: 041
     Dates: start: 20200529, end: 20200529
  10. DUPHALAC [Concomitant]
     Active Substance: LACTULOSE
     Indication: CONSTIPATION
     Dosage: 45 MILLILITER
     Route: 048
     Dates: start: 20200605, end: 20200608
  11. XIAO KE WAN [Concomitant]
     Indication: DIABETES MELLITUS
     Dosage: 12 DOSAGE FORMS
     Route: 048
     Dates: start: 2019
  12. ADALAT [Concomitant]
     Active Substance: NIFEDIPINE
     Indication: HYPERTENSION
     Dosage: 30 MILLIGRAM
     Route: 048
     Dates: start: 202002
  13. VITAMIN C [Concomitant]
     Active Substance: ASCORBIC ACID
     Indication: PROPHYLAXIS
     Route: 041
     Dates: start: 20200529, end: 20200529
  14. ABRAXANE [Suspect]
     Active Substance: PACLITAXEL
     Dosage: 25 MILLIGRAM
     Route: 041
     Dates: start: 20200529, end: 20200529
  15. ATORVASTATIN CALCIUM. [Concomitant]
     Active Substance: ATORVASTATIN CALCIUM
     Indication: ARTERIOSCLEROSIS
     Dosage: 20 MILLIGRAM
     Route: 048
     Dates: start: 202002
  16. SERPLULIMAB. [Suspect]
     Active Substance: SERPLULIMAB
     Indication: SQUAMOUS CELL CARCINOMA OF LUNG
     Route: 041
     Dates: start: 20200507, end: 20200508

REACTIONS (1)
  - Myelosuppression [Recovered/Resolved]

NARRATIVE: CASE EVENT DATE: 20200605
